FAERS Safety Report 25523775 (Version 1)
Quarter: 2025Q3

REPORT INFORMATION
  Report Type: Spontaneous
  Country: US (occurrence: US)
  Receive Date: 20250707
  Receipt Date: 20250707
  Transmission Date: 20251021
  Serious: No
  Sender: ACCORD
  Company Number: US-Accord-437692

PATIENT
  Age: 77 Year
  Sex: Male
  Weight: 92.99 kg

DRUGS (2)
  1. LEUPROLIDE [Suspect]
     Active Substance: LEUPROLIDE
     Indication: Prostate cancer
  2. LEUPROLIDE [Suspect]
     Active Substance: LEUPROLIDE
     Indication: Prostate cancer

REACTIONS (3)
  - Migraine [Unknown]
  - Condition aggravated [Unknown]
  - Weight increased [Unknown]
